FAERS Safety Report 7458839-4 (Version None)
Quarter: 2011Q2

REPORT INFORMATION
  Report Type: 
  Country: None (occurrence: None)
  Receive Date: 20110504
  Receipt Date: 20110425
  Transmission Date: 20111010
  Serious: Yes (Hospitalization, Other)
  Sender: FDA-Public Use
  Company Number: US-ASTRAZENECA-2010SE17568

PATIENT
  Age: 17808 Day
  Sex: Female
  Weight: 72.6 kg

DRUGS (8)
  1. LEXAPRO [Concomitant]
     Indication: DEPRESSION
     Route: 048
  2. LIPITOR [Concomitant]
     Indication: HYPERCHOLESTEROLAEMIA
     Route: 048
  3. ELMIRON [Concomitant]
     Indication: BLADDER DISCOMFORT
     Route: 048
  4. SYNTHROID [Concomitant]
     Indication: THYROID DISORDER
     Route: 048
  5. SEROQUEL XR [Suspect]
     Route: 048
     Dates: start: 20090901
  6. VITAMIN D [Concomitant]
     Indication: VITAMIN D DEFICIENCY
     Route: 048
  7. SEROQUEL XR [Suspect]
     Route: 048
  8. SINGULAIR [Concomitant]
     Indication: SEASONAL ALLERGY
     Route: 048

REACTIONS (5)
  - MYOCARDIAL ISCHAEMIA [None]
  - CHEST PAIN [None]
  - SOMNOLENCE [None]
  - CATHETERISATION CARDIAC [None]
  - BLOOD PRESSURE INCREASED [None]
